FAERS Safety Report 21059163 (Version 2)
Quarter: 2023Q1

REPORT INFORMATION
  Report Type: Spontaneous
  Country: US (occurrence: US)
  Receive Date: 20220708
  Receipt Date: 20230118
  Transmission Date: 20230417
  Serious: No
  Sender: FDA-Public Use
  Company Number: US-PFIZER INC-202200938537

PATIENT
  Age: 51 Year
  Sex: Female
  Weight: 65.32 kg

DRUGS (2)
  1. IBRANCE [Suspect]
     Active Substance: PALBOCICLIB
     Indication: Breast cancer metastatic
     Dosage: 75 MG, TAKE 1 TABLET DAILY FOR 21 DAYS ON AND 7 DAYS OFF
     Dates: start: 20160715
  2. IBRANCE [Suspect]
     Active Substance: PALBOCICLIB
     Dosage: 75MG ONCE A DAY FOR 21 DAYS AND THEN TAKE 7 DAYS OFF
     Dates: start: 201608

REACTIONS (7)
  - Infection [Recovered/Resolved]
  - COVID-19 [Unknown]
  - Illness [Unknown]
  - Foot fracture [Unknown]
  - Intentional dose omission [Unknown]
  - Expired product administered [Unknown]
  - Neutrophil count decreased [Recovered/Resolved]
